FAERS Safety Report 8085202-8 (Version None)
Quarter: 2012Q1

REPORT INFORMATION
  Report Type: 
  Country: None (occurrence: None)
  Receive Date: 20120128
  Receipt Date: 20110329
  Transmission Date: 20120608
  Serious: No
  Sender: FDA-Public Use
  Company Number: US-ABBOTT-11P-163-0714970-00

PATIENT
  Sex: Female
  Weight: 79.45 kg

DRUGS (2)
  1. HUMIRA [Suspect]
     Indication: PSORIASIS
     Dates: start: 20100701
  2. TRI-SPRINTEC [Concomitant]
     Indication: ORAL CONTRACEPTION

REACTIONS (2)
  - NASAL CONGESTION [None]
  - HEADACHE [None]
